FAERS Safety Report 9943170 (Version 1)
Quarter: 2014Q1

REPORT INFORMATION
  Report Type: Spontaneous
  Country: US (occurrence: US)
  Receive Date: 20140303
  Receipt Date: 20140303
  Transmission Date: 20141002
  Serious: Yes (Other)
  Sender: FDA-Public Use
  Company Number: US-GLAXOSMITHKLINE-A1063124A

PATIENT
  Sex: Female

DRUGS (8)
  1. LOVAZA [Suspect]
     Indication: BLOOD CHOLESTEROL ABNORMAL
     Dosage: 2G PER DAY
     Route: 065
  2. SUPPLEMENT [Suspect]
     Indication: SUPPLEMENTATION THERAPY
     Dosage: 3CAP TWICE PER DAY
     Route: 065
  3. QUETIAPINE FUMARATE [Suspect]
     Indication: BIPOLAR DISORDER
     Dosage: 400MG AT NIGHT
     Route: 065
  4. CLONAZEPAM [Suspect]
     Indication: ANXIETY
     Dosage: 1MG TWICE PER DAY
     Route: 065
  5. FLUOXETINE HCL [Suspect]
     Indication: DEPRESSION
     Dosage: 20MG PER DAY
     Route: 065
  6. ZOLPIDEM TARTRATE [Suspect]
     Indication: SLEEP DISORDER
     Dosage: 10MG AT NIGHT
     Route: 065
  7. ASPIRIN [Suspect]
     Indication: PRODUCT USED FOR UNKNOWN INDICATION
     Dosage: 81MG PER DAY
  8. METFORMIN [Concomitant]
     Indication: TYPE 2 DIABETES MELLITUS
     Dosage: 500MG PER DAY
     Route: 065

REACTIONS (7)
  - Liver injury [Unknown]
  - Fatigue [Unknown]
  - Rash [Unknown]
  - Rash erythematous [Unknown]
  - Decreased appetite [Unknown]
  - Asthenia [Unknown]
  - Alopecia [Unknown]
